FAERS Safety Report 16649856 (Version 1)
Quarter: 2019Q3

REPORT INFORMATION
  Report Type: Spontaneous
  Country: FR (occurrence: FR)
  Receive Date: 20190731
  Receipt Date: 20190731
  Transmission Date: 20191004
  Serious: Yes (Other)
  Sender: FDA-Public Use
  Company Number: FR-ACCORD-149530

PATIENT
  Age: 55 Year
  Sex: Male
  Weight: 58 kg

DRUGS (7)
  1. COVERAM [Concomitant]
     Active Substance: AMLODIPINE\PERINDOPRIL
  2. TRANXENE [Concomitant]
     Active Substance: CLORAZEPATE DIPOTASSIUM
  3. LEXOMIL ROCHE [Concomitant]
     Active Substance: BROMAZEPAM
     Dosage: BAGUETTE,QUADRISECABLE TABLET
  4. GEMCITABINE ACCORD [Suspect]
     Active Substance: GEMCITABINE HYDROCHLORIDE
     Indication: PANCREATIC CARCINOMA
     Route: 041
     Dates: start: 20190703, end: 20190703
  5. ACTISKENAN [Concomitant]
     Active Substance: MORPHINE SULFATE
  6. IMOVANE [Concomitant]
     Active Substance: ZOPICLONE
     Dosage: STRENGTH 7.5 MG
  7. ATARAX [Concomitant]
     Active Substance: HYDROXYZINE HYDROCHLORIDE

REACTIONS (2)
  - Diarrhoea [Recovered/Resolved]
  - Insomnia [Recovering/Resolving]

NARRATIVE: CASE EVENT DATE: 20190704
